FAERS Safety Report 4675584-9 (Version None)
Quarter: 2005Q2

REPORT INFORMATION
  Report Type: 
  Country: None (occurrence: None)
  Receive Date: 20050527
  Receipt Date: 20050420
  Transmission Date: 20051028
  Serious: No
  Sender: FDA-Public Use
  Company Number: US-BRISTOL-MYERS SQUIBB COMPANY-12939419

PATIENT
  Age: 6 Year
  Sex: Male
  Weight: 32 kg

DRUGS (3)
  1. ABILIFY [Suspect]
     Indication: BIPOLAR DISORDER
     Dosage: INITIATED AT 2.5 MG/DAY
     Route: 048
     Dates: start: 20050410, end: 20050418
  2. ADDERALL 10 [Concomitant]
  3. SEROQUEL [Concomitant]

REACTIONS (5)
  - AFFECT LABILITY [None]
  - ANOREXIA [None]
  - LETHARGY [None]
  - SOMNOLENCE [None]
  - TREMOR [None]
